FAERS Safety Report 4333271-0 (Version None)
Quarter: 2004Q2

REPORT INFORMATION
  Report Type: 
  Country: None (occurrence: None)
  Receive Date: 20040401
  Receipt Date: 20040318
  Transmission Date: 20050107
  Serious: Yes (Life-Threatening, Hospitalization, Other)
  Sender: FDA-Public Use
  Company Number: 2003IM000504

PATIENT
  Age: 73 Year
  Sex: Male
  Weight: 94 kg

DRUGS (19)
  1. ACTIMMUNE [Suspect]
     Indication: INTERSTITIAL LUNG DISEASE
     Dosage: 200 UG; TIW; SUBCUTANEOUS
     Route: 058
     Dates: start: 20021114, end: 20030508
  2. HUMULIN 70/30 [Concomitant]
  3. ATROVENT [Concomitant]
  4. ALBUTEROL [Concomitant]
  5. SEREVENT [Concomitant]
  6. GEMFIBROZIL [Concomitant]
  7. ZOCOR [Concomitant]
  8. IMDUR [Concomitant]
  9. LASIX [Concomitant]
  10. ASPIRIN [Concomitant]
  11. PREDNISONE [Concomitant]
  12. LORAZEPAM [Concomitant]
  13. REGLAN [Concomitant]
  14. AMBIEN [Concomitant]
  15. DARVOCET [Concomitant]
  16. NEXIUM [Concomitant]
  17. LEXAPRO [Concomitant]
  18. OXYGEN [Concomitant]
  19. VICODIN [Concomitant]

REACTIONS (18)
  - ALANINE AMINOTRANSFERASE INCREASED [None]
  - ATRIAL FIBRILLATION [None]
  - BLADDER CANCER [None]
  - BLADDER OBSTRUCTION [None]
  - CARDIAC FAILURE CONGESTIVE [None]
  - CONFUSIONAL STATE [None]
  - DYSPNOEA [None]
  - ECHOCARDIOGRAM ABNORMAL [None]
  - INFECTION [None]
  - LIVER FUNCTION TEST ABNORMAL [None]
  - MENTAL STATUS CHANGES [None]
  - MYOCARDIAL INFARCTION [None]
  - MYOCARDIAL ISCHAEMIA [None]
  - OXYGEN SATURATION DECREASED [None]
  - PULMONARY OEDEMA [None]
  - PYREXIA [None]
  - RENAL CYST [None]
  - URINARY RETENTION [None]
